FAERS Safety Report 8067464-6 (Version None)
Quarter: 2012Q1

REPORT INFORMATION
  Report Type: 
  Country: None (occurrence: None)
  Receive Date: 20120124
  Receipt Date: 20120119
  Transmission Date: 20120608
  Serious: Yes (Disabling, Other)
  Sender: FDA-Public Use
  Company Number: US-TEVA-318288USA

PATIENT
  Sex: Female

DRUGS (13)
  1. MULTI-VITAMINS [Concomitant]
  2. VENLAFAXINE [Suspect]
     Indication: DEPRESSIVE SYMPTOM
  3. ESCITALOPRAM OXALATE [Suspect]
     Indication: DEPRESSIVE SYMPTOM
  4. ATORVASTATIN CALCIUM [Concomitant]
     Dates: end: 20080101
  5. LAMOTRIGINE [Suspect]
     Indication: BIPOLAR II DISORDER
     Route: 048
     Dates: start: 20010101
  6. OXCARBAZEPINE [Concomitant]
     Dates: end: 20080101
  7. ZIPRASIDONE HCL [Suspect]
     Indication: PRODUCT USED FOR UNKNOWN INDICATION
  8. BUPROPION HYDROCHLORIDE [Suspect]
     Indication: DEPRESSIVE SYMPTOM
     Route: 048
  9. NORTRIPTYLINE HCL [Concomitant]
  10. FISH OIL [Concomitant]
  11. LAMICTAL [Suspect]
     Indication: BIPOLAR II DISORDER
     Route: 048
     Dates: start: 20010101
  12. MICROGESTIN 1.5/30 [Suspect]
     Indication: CONTRACEPTION
  13. FOLPLEX [Concomitant]

REACTIONS (12)
  - OVERDOSE [None]
  - HYPERSOMNIA [None]
  - STRESS [None]
  - DEPRESSION [None]
  - MATERNAL EXPOSURE DURING PREGNANCY [None]
  - DISABILITY [None]
  - DRUG LEVEL DECREASED [None]
  - ACTIVITIES OF DAILY LIVING IMPAIRED [None]
  - DEPRESSED MOOD [None]
  - ABORTION SPONTANEOUS [None]
  - BEDRIDDEN [None]
  - DISTURBANCE IN ATTENTION [None]
